FAERS Safety Report 11614767 (Version 1)
Quarter: 2015Q4

REPORT INFORMATION
  Report Type: Spontaneous
  Country: US (occurrence: US)
  Receive Date: 20151009
  Receipt Date: 20151009
  Transmission Date: 20160304
  Serious: No
  Sender: FDA-Public Use
  Company Number: US-PAR PHARMACEUTICAL, INC-2015SCPR010369

PATIENT

DRUGS (5)
  1. PROGESTERONE. [Concomitant]
     Active Substance: PROGESTERONE
     Indication: HORMONE LEVEL ABNORMAL
     Dosage: UNK, OD
     Route: 048
  2. CHOLESTYRAMINE. [Suspect]
     Active Substance: CHOLESTYRAMINE
     Indication: DIARRHOEA
     Dosage: BID, 1 PACKET IN THE MORNING AND 1 PACKET AT NIGHT
     Route: 048
     Dates: start: 201312, end: 2014
  3. DHEA [Concomitant]
     Active Substance: PRASTERONE
     Indication: HORMONE LEVEL ABNORMAL
     Dosage: UNK, OD
     Route: 048
  4. SYNTHROID [Concomitant]
     Active Substance: LEVOTHYROXINE SODIUM
     Indication: HORMONE LEVEL ABNORMAL
     Dosage: UNK UNK, OD
     Route: 048
  5. CHOLESTYRAMINE. [Suspect]
     Active Substance: CHOLESTYRAMINE
     Indication: BLOOD CHOLESTEROL ABNORMAL
     Dosage: BID, 2 PACKETS IN THE MORNING AND 2 PACKETS AT NIGHT
     Route: 048
     Dates: start: 2014

REACTIONS (5)
  - Product use issue [Unknown]
  - Eructation [Not Recovered/Not Resolved]
  - Oesophageal discomfort [Not Recovered/Not Resolved]
  - Dyspepsia [Not Recovered/Not Resolved]
  - Flatulence [Not Recovered/Not Resolved]

NARRATIVE: CASE EVENT DATE: 201312
